FAERS Safety Report 12312795 (Version 2)
Quarter: 2016Q2

REPORT INFORMATION
  Report Type: Report from Study
  Country: US (occurrence: US)
  Receive Date: 20160428
  Receipt Date: 20160602
  Transmission Date: 20160815
  Serious: Yes (Hospitalization, Other)
  Sender: FDA-Public Use
  Company Number: US-BAXTER-2016BAX021041

PATIENT
  Age: 71 Year
  Sex: Female
  Weight: 120.67 kg

DRUGS (23)
  1. DOXORUBICIN [Suspect]
     Active Substance: DOXORUBICIN
     Indication: TRIPLE NEGATIVE BREAST CANCER
     Dosage: DAY 1 OF 14-DAY CYCLES IN CHEMOTHERAPY SEGMENT 2
     Route: 042
     Dates: start: 20160105, end: 20160310
  2. MECLIZINE [Concomitant]
     Active Substance: MECLIZINE HYDROCHLORIDE
     Indication: VERTIGO
     Route: 048
     Dates: start: 20160120
  3. PANTOPRAZOLE [Concomitant]
     Active Substance: PANTOPRAZOLE SODIUM
     Indication: GASTRIC POLYPS
     Route: 048
     Dates: start: 20160204
  4. ABT-888 [Suspect]
     Active Substance: VELIPARIB
     Indication: TRIPLE NEGATIVE BREAST CANCER
     Dosage: THROUGH CHEMOTHERAPY SEGMENT 1
     Route: 048
     Dates: start: 20150923, end: 20151231
  5. NEULASTA [Concomitant]
     Active Substance: PEGFILGRASTIM
     Indication: PROPHYLAXIS
     Dosage: ON BODY INJECTOR, POST CHEMO
     Route: 058
     Dates: start: 20160105, end: 20160106
  6. PALONOSETRON [Concomitant]
     Active Substance: PALONOSETRON
     Indication: PREMEDICATION
     Dosage: DAY 1
     Route: 040
     Dates: start: 20160105
  7. PACLITAXEL. [Suspect]
     Active Substance: PACLITAXEL
     Indication: TRIPLE NEGATIVE BREAST CANCER
     Dosage: DAY 1 OF 12 WEEKLY CYCLES IN CHEMOTHERAPY SEGMENT 1
     Route: 042
     Dates: start: 20150923, end: 20151223
  8. CYCLOPHOSPHAMIDE FOR INJECTION, USP [Suspect]
     Active Substance: CYCLOPHOSPHAMIDE
     Indication: TRIPLE NEGATIVE BREAST CANCER
     Dosage: DAY 1 OF 14-DAY CYCLES IN CHEMOTHERAPY SEGMENT 2
     Route: 042
     Dates: start: 20160105, end: 20160310
  9. COUMADIN [Concomitant]
     Active Substance: WARFARIN SODIUM
     Indication: DEEP VEIN THROMBOSIS
  10. OMEPRAZOLE. [Concomitant]
     Active Substance: OMEPRAZOLE
     Indication: GASTROOESOPHAGEAL REFLUX DISEASE
     Route: 048
     Dates: start: 20130715
  11. KLOR-CON M20 [Concomitant]
     Active Substance: POTASSIUM CHLORIDE
     Indication: HYPOKALAEMIA
     Route: 048
     Dates: start: 20160111
  12. COUMADIN [Concomitant]
     Active Substance: WARFARIN SODIUM
     Indication: VENOUS THROMBOSIS
     Dosage: 4 MG EVERY TUESDAY, THURSDAY, SATURDAY AND 3 MG ALL OTHER DAYS
     Route: 048
     Dates: start: 20160309
  13. CARBOPLATIN. [Suspect]
     Active Substance: CARBOPLATIN
     Indication: TRIPLE NEGATIVE BREAST CANCER
     Dosage: DAY 1 OF 21-DAY CYCLES IN CHEMOTHERAPY SEGMENT 1
     Route: 042
     Dates: start: 20150923, end: 20151111
  14. VIGRAN [Concomitant]
     Indication: ROUTINE HEALTH MAINTENANCE
     Dosage: ONE PILL
     Route: 048
     Dates: start: 20100715
  15. NEULASTA [Concomitant]
     Active Substance: PEGFILGRASTIM
     Dosage: ON BODY INJECTOR, POST CHEMOTHERAPY TREATMENT
     Route: 058
     Dates: start: 20160119, end: 20160120
  16. FERROUS SULFATE. [Concomitant]
     Active Substance: FERROUS SULFATE
     Indication: ANAEMIA
     Route: 048
     Dates: start: 20160314
  17. KEFLEX [Concomitant]
     Active Substance: CEPHALEXIN
     Indication: INFECTION PROPHYLAXIS
     Route: 048
     Dates: start: 20130615
  18. COMPAZINE [Concomitant]
     Active Substance: PROCHLORPERAZINE MALEATE
     Indication: NAUSEA
     Dosage: 1 IN 6 HOUR
     Route: 048
     Dates: start: 20150923
  19. LORAZEPAM. [Concomitant]
     Active Substance: LORAZEPAM
     Indication: PREMEDICATION
     Dosage: DAY 1
     Route: 048
     Dates: start: 20160105
  20. LOVENOX [Concomitant]
     Active Substance: ENOXAPARIN SODIUM
     Indication: DEEP VEIN THROMBOSIS
  21. ALUDROX [Concomitant]
     Indication: MUSCLE SPASMS
     Route: 048
     Dates: start: 20151223
  22. FOSAPREPITANT [Concomitant]
     Active Substance: FOSAPREPITANT
     Indication: PREMEDICATION
     Dosage: ON DAY 1
     Route: 041
     Dates: start: 20160105
  23. LOVENOX [Concomitant]
     Active Substance: ENOXAPARIN SODIUM
     Indication: VENOUS THROMBOSIS
     Route: 058
     Dates: start: 20160309, end: 20160315

REACTIONS (2)
  - Sinusitis [Recovered/Resolved]
  - Febrile neutropenia [Recovered/Resolved]

NARRATIVE: CASE EVENT DATE: 20160318
